FAERS Safety Report 12450062 (Version 1)
Quarter: 2016Q2

REPORT INFORMATION
  Report Type: Spontaneous
  Country: TR (occurrence: TR)
  Receive Date: 20160609
  Receipt Date: 20160609
  Transmission Date: 20160815
  Serious: Yes (Other)
  Sender: FDA-Public Use
  Company Number: TR-AUROBINDO-AUR-APL-2016-07636

PATIENT
  Age: 36 Year
  Sex: Male

DRUGS (6)
  1. QUETIAPINE 100MG [Suspect]
     Active Substance: QUETIAPINE
     Dosage: 200 MG, UNK
     Route: 065
  2. QUETIAPINE 100MG [Suspect]
     Active Substance: QUETIAPINE
     Indication: MANIA
     Dosage: 100 MG, UNK
     Route: 065
  3. QUETIAPINE 100MG [Suspect]
     Active Substance: QUETIAPINE
     Indication: BIPOLAR DISORDER
     Dosage: 200 MG, UNK
     Route: 065
  4. QUETIAPINE 100MG [Suspect]
     Active Substance: QUETIAPINE
     Dosage: 400 MG, UNK
     Route: 065
  5. QUETIAPINE 100MG [Suspect]
     Active Substance: QUETIAPINE
     Dosage: 400 MG, UNK
     Route: 065
  6. QUETIAPINE 100MG [Suspect]
     Active Substance: QUETIAPINE
     Dosage: 100 MG, UNK
     Route: 065

REACTIONS (1)
  - Angioedema [Not Recovered/Not Resolved]
